FAERS Safety Report 4577404-X (Version None)
Quarter: 2005Q1

REPORT INFORMATION
  Report Type: 
  Country: None (occurrence: None)
  Receive Date: 20050208
  Receipt Date: 20050126
  Transmission Date: 20050727
  Serious: Yes (Other)
  Sender: FDA-Public Use
  Company Number: HQWYE860408DEC04

PATIENT
  Age: 27 Year
  Sex: Female

DRUGS (7)
  1. ADVIL COLD AND SINUS [Suspect]
     Dosage: 20 TABLETS DAILY ORAL
     Route: 048
  2. AMOXICILLIN [Suspect]
  3. DIMENHYDRINATE [Suspect]
  4. NIFUROXAZIDE (NIFUROXAZIDE) [Concomitant]
  5. SPASFON (PHLOROGLUCINOL/TRIMETHYLPHLOROGLUCINOL) [Suspect]
  6. LEXOMIL (BROMAZEPAM) [Concomitant]
  7. PAROXETINE HCL [Concomitant]

REACTIONS (2)
  - DRUG ABUSER [None]
  - OVERDOSE [None]
